FAERS Safety Report 20258251 (Version 2)
Quarter: 2022Q1

REPORT INFORMATION
  Report Type: Spontaneous
  Country: US (occurrence: US)
  Receive Date: 20211230
  Receipt Date: 20220103
  Transmission Date: 20220423
  Serious: Yes (Hospitalization, Other)
  Sender: FDA-Public Use
  Company Number: US-ALVOGEN-2021-ALVOGEN-118024

PATIENT
  Age: 48 Year
  Sex: Female

DRUGS (2)
  1. FLUOXETINE [Suspect]
     Active Substance: FLUOXETINE HYDROCHLORIDE
     Indication: Depression
     Dosage: TOOK FOR SOME YEARS THEN STOPPED
     Dates: start: 2004
  2. BUSPIRONE [Concomitant]
     Active Substance: BUSPIRONE HYDROCHLORIDE
     Indication: Anxiolytic therapy

REACTIONS (6)
  - Osteomyelitis [Recovered/Resolved]
  - Streptococcal infection [Recovered/Resolved]
  - Lactobacillus infection [Recovered/Resolved]
  - Abscess oral [Recovered/Resolved]
  - Candida infection [Recovered/Resolved]
  - Dental restoration failure [Recovered/Resolved]

NARRATIVE: CASE EVENT DATE: 20190801
